FAERS Safety Report 9891864 (Version 2)
Quarter: 2014Q2

REPORT INFORMATION
  Report Type: Spontaneous
  Country: US (occurrence: US)
  Receive Date: 20140212
  Receipt Date: 20140402
  Transmission Date: 20141212
  Serious: Yes (Hospitalization)
  Sender: FDA-Public Use
  Company Number: US-BAYER-2014-021243

PATIENT
  Age: 26 Year
  Sex: Female
  Weight: 47.17 kg

DRUGS (4)
  1. MIRENA [Suspect]
     Indication: CONTRACEPTION
     Dosage: 20 MCG/24HR, CONT
     Route: 015
     Dates: start: 20061107, end: 20080523
  2. PROVENTIL [Concomitant]
     Indication: ASTHMA
     Dosage: CHILDHOOD TO PRESENT
  3. FLOVENT [Concomitant]
     Indication: ASTHMA
     Dosage: CHILDHOOD TO PRESENT
  4. FLOVENT [Concomitant]
     Indication: BRONCHITIS

REACTIONS (8)
  - Uterine perforation [None]
  - Menstruation irregular [None]
  - Device dislocation [None]
  - Injury [None]
  - Pain [None]
  - Emotional distress [None]
  - Depression [None]
  - Anxiety [None]
